FAERS Safety Report 21745406 (Version 2)
Quarter: 2023Q1

REPORT INFORMATION
  Report Type: Spontaneous
  Country: US (occurrence: US)
  Receive Date: 20221219
  Receipt Date: 20230323
  Transmission Date: 20230418
  Serious: No
  Sender: FDA-Public Use
  Company Number: US-Hikma Pharmaceuticals USA Inc.-US-H14001-22-03032

PATIENT
  Sex: Female

DRUGS (1)
  1. FLUTICASONE PROPIONATE AND SALMETEROL [Suspect]
     Active Substance: FLUTICASONE PROPIONATE\SALMETEROL XINAFOATE
     Indication: Asthma
     Dosage: STRENGTH: 100 MCG/50 MCG; DOSING: ONE PUFF
     Dates: start: 20221115

REACTIONS (3)
  - Drug intolerance [Unknown]
  - Product use complaint [Unknown]
  - Incorrect dose administered [Unknown]
